FAERS Safety Report 11785051 (Version 3)
Quarter: 2016Q3

REPORT INFORMATION
  Report Type: Spontaneous
  Country: US (occurrence: US)
  Receive Date: 20151130
  Receipt Date: 20160719
  Transmission Date: 20161109
  Serious: Yes (Other)
  Sender: FDA-Public Use
  Company Number: PHEH2015US024878

PATIENT
  Sex: Female
  Weight: 46.72 kg

DRUGS (6)
  1. TEGRETOL [Suspect]
     Active Substance: CARBAMAZEPINE
     Indication: PRODUCT USED FOR UNKNOWN INDICATION
     Dosage: 200 MG, QID
     Route: 048
     Dates: start: 197906
  2. ASA [Suspect]
     Active Substance: ASPIRIN
     Indication: PRODUCT USED FOR UNKNOWN INDICATION
     Dosage: 81 MG, UNK
     Route: 065
  3. MOGADON [Concomitant]
     Active Substance: NITRAZEPAM
     Indication: SEIZURE
     Dosage: ,ONE PILL AT NOON AND 2 PILLS AT NIGHT
     Route: 065
     Dates: start: 1985
  4. ALTACE [Suspect]
     Active Substance: RAMIPRIL
     Indication: PRODUCT USED FOR UNKNOWN INDICATION
     Route: 065
  5. CARBAMAZEPINE. [Suspect]
     Active Substance: CARBAMAZEPINE
     Indication: PRODUCT USED FOR UNKNOWN INDICATION
     Route: 065
  6. DILANTIN (PHENYTOIN SODIUM) [Suspect]
     Active Substance: PHENYTOIN SODIUM
     Indication: SEIZURE
     Dosage: 3 DF, QD
     Route: 048
     Dates: start: 1979

REACTIONS (4)
  - Drug hypersensitivity [Unknown]
  - Seizure [Recovered/Resolved]
  - Urticaria [Recovered/Resolved]
  - Rash [Unknown]
